FAERS Safety Report 4659017-4 (Version None)
Quarter: 2005Q2

REPORT INFORMATION
  Report Type: 
  Country: None (occurrence: None)
  Receive Date: 20050511
  Receipt Date: 20050505
  Transmission Date: 20051028
  Serious: Yes (Other)
  Sender: FDA-Public Use
  Company Number: CA-GLAXOSMITHKLINE-A0557619A

PATIENT
  Age: 14 Year
  Sex: Male

DRUGS (2)
  1. IMITREX [Suspect]
     Indication: DRUG USE FOR UNKNOWN INDICATION
     Dosage: 25MG SINGLE DOSE
     Route: 065
  2. PEPTO BISMOL [Concomitant]

REACTIONS (3)
  - AGITATION [None]
  - CRYING [None]
  - SPEECH DISORDER [None]
